FAERS Safety Report 6074991-X (Version None)
Quarter: 2009Q1

REPORT INFORMATION
  Report Type: 
  Country: None (occurrence: None)
  Receive Date: 20090212
  Receipt Date: 20090130
  Transmission Date: 20090719
  Serious: Yes (Other)
  Sender: FDA-Public Use
  Company Number: US-WYE-H07258208

PATIENT
  Sex: Female

DRUGS (6)
  1. PREMPRO [Suspect]
  2. OGEN [Suspect]
  3. PROGESTERONE [Suspect]
  4. VIVELLE [Suspect]
  5. MEDROXYPROGESTERONE ACETATE [Suspect]
  6. ESTROPIPATE [Suspect]

REACTIONS (1)
  - CONTRALATERAL BREAST CANCER [None]
